FAERS Safety Report 20611163 (Version 3)
Quarter: 2022Q3

REPORT INFORMATION
  Report Type: Spontaneous
  Country: GB (occurrence: GB)
  Receive Date: 20220318
  Receipt Date: 20220726
  Transmission Date: 20221026
  Serious: Yes (Other)
  Sender: FDA-Public Use
  Company Number: GB-Actavis-078803

PATIENT

DRUGS (7)
  1. DOPAMINE HYDROCHLORIDE [Suspect]
     Active Substance: DOPAMINE HYDROCHLORIDE
     Dosage: UNK
  2. METOCLOPRAMIDE [Suspect]
     Active Substance: METOCLOPRAMIDE
     Indication: Gastrooesophageal reflux disease
     Dosage: DOSE: DOSE OF 10MG X 3 X DAILY FOR THELAST 8 YEARS; ;
     Dates: start: 2014
  3. METOCLOPRAMIDE [Suspect]
     Active Substance: METOCLOPRAMIDE
     Indication: Nausea
     Dosage: DOSE: 10MG 2X DAILY FOR 7 DAYS;
     Dates: start: 202112
  4. METOCLOPRAMIDE [Suspect]
     Active Substance: METOCLOPRAMIDE
     Dosage: 10 MG, 1X/DAY
  5. METOCLOPRAMIDE [Suspect]
     Active Substance: METOCLOPRAMIDE
     Dosage: DOSE: 15MG A DAY FROM 30MG A DAY; ;
  6. METOCLOPRAMIDE [Suspect]
     Active Substance: METOCLOPRAMIDE
     Dosage: DOSE: 10MG 1X DAILY FOR SEVERAL DAYS;
  7. SEROTONIN [Suspect]
     Active Substance: SEROTONIN
     Dosage: UNK

REACTIONS (7)
  - Neuromyopathy [Recovering/Resolving]
  - Erectile dysfunction [Recovering/Resolving]
  - Neurological symptom [Recovering/Resolving]
  - Condition aggravated [Recovering/Resolving]
  - Tremor [Recovering/Resolving]
  - Toxicity to various agents [Recovering/Resolving]
  - Withdrawal syndrome [Unknown]
